FAERS Safety Report 6024393-7 (Version None)
Quarter: 2008Q4

REPORT INFORMATION
  Report Type: 
  Country: None (occurrence: None)
  Receive Date: 20081229
  Receipt Date: 20081215
  Transmission Date: 20090506
  Serious: Yes (Other)
  Sender: FDA-Public Use
  Company Number: ACO_00501_2008

PATIENT
  Age: 69 Year
  Sex: Male

DRUGS (1)
  1. TIZANIDINE HCL [Suspect]
     Indication: HYPOAESTHESIA
     Dosage: 1 DF TID
     Dates: start: 20061001

REACTIONS (2)
  - ALCOHOL USE [None]
  - LOSS OF CONSCIOUSNESS [None]
